FAERS Safety Report 22077448 (Version 1)
Quarter: 2023Q1

REPORT INFORMATION
  Report Type: Spontaneous
  Country: US (occurrence: US)
  Receive Date: 20230309
  Receipt Date: 20230309
  Transmission Date: 20230417
  Serious: No
  Sender: FDA-Public Use
  Company Number: US-BRISTOL-MYERS SQUIBB COMPANY-2023-033927

PATIENT
  Age: 66 Year
  Sex: Female

DRUGS (1)
  1. SOTYKTU [Suspect]
     Active Substance: DEUCRAVACITINIB
     Indication: Psoriasis
     Route: 048
     Dates: start: 202212, end: 202302

REACTIONS (3)
  - Pruritus [Unknown]
  - Burning sensation [Unknown]
  - Drug ineffective [Unknown]
